FAERS Safety Report 6121178-8 (Version None)
Quarter: 2009Q1

REPORT INFORMATION
  Report Type: 
  Country: None (occurrence: None)
  Receive Date: 20090317
  Receipt Date: 20090311
  Transmission Date: 20090719
  Serious: Yes (Hospitalization)
  Sender: FDA-Public Use
  Company Number: JP-ABBOTT-09P-087-0561942-00

PATIENT
  Age: 39 Year
  Sex: Female

DRUGS (4)
  1. CLARITHROMYCIN [Suspect]
     Indication: PLEURISY
     Dosage: NOT REPORTED
  2. AMOXICILLIN [Concomitant]
     Indication: PLEURISY
     Dosage: NOT REPORTED
  3. METRONIDAZOLE [Concomitant]
     Indication: PLEURISY
     Dosage: NOT REPORTED
  4. AMOXICILLIN AND CLAVULANATE POTASSIUM [Concomitant]
     Indication: PLEURISY
     Dosage: NOT REPORTED

REACTIONS (2)
  - PAIN [None]
  - PYREXIA [None]
